FAERS Safety Report 25504612 (Version 1)
Quarter: 2025Q3

REPORT INFORMATION
  Report Type: Report from Study
  Country: US (occurrence: US)
  Receive Date: 20250702
  Receipt Date: 20250702
  Transmission Date: 20251021
  Serious: Yes (Hospitalization)
  Sender: EISAI
  Company Number: US-Eisai-EC-2025-192327

PATIENT
  Age: 66 Year
  Sex: Female
  Weight: 69.5 kg

DRUGS (16)
  1. LENVIMA [Suspect]
     Active Substance: LENVATINIB
     Indication: Renal cancer
     Dates: start: 20250515, end: 20250623
  2. EVEROLIMUS [Concomitant]
     Active Substance: EVEROLIMUS
  3. VITAMINS [Concomitant]
     Active Substance: VITAMINS
  4. PROBIOTIC CHEWABLE [Concomitant]
  5. HERBALS\TURMERIC [Concomitant]
     Active Substance: HERBALS\TURMERIC
  6. PANTOPRAZOLE [Concomitant]
     Active Substance: PANTOPRAZOLE
  7. EPIPEN [Concomitant]
     Active Substance: EPINEPHRINE
  8. SYNTHROID [Concomitant]
     Active Substance: LEVOTHYROXINE SODIUM
  9. TRIAMCINOLONE ACETONIDE [Concomitant]
     Active Substance: TRIAMCINOLONE ACETONIDE
  10. GABAPENTIN [Concomitant]
     Active Substance: GABAPENTIN
  11. ONDANSETRON [Concomitant]
     Active Substance: ONDANSETRON
  12. CARAFATE [Concomitant]
     Active Substance: SUCRALFATE
  13. DICLOFENAC SODIUM [Concomitant]
     Active Substance: DICLOFENAC SODIUM
  14. PREGABALIN [Concomitant]
     Active Substance: PREGABALIN
  15. CYCLOBENZAPRINE HYDROCHLORIDE [Concomitant]
     Active Substance: CYCLOBENZAPRINE HYDROCHLORIDE
  16. TYLENOL EXTRA STRENGTH [Concomitant]
     Active Substance: ACETAMINOPHEN

REACTIONS (3)
  - Hepatic enzyme increased [Unknown]
  - Dehydration [Unknown]
  - Hypotension [Unknown]

NARRATIVE: CASE EVENT DATE: 20250623
